FAERS Safety Report 24642117 (Version 2)
Quarter: 2024Q4

REPORT INFORMATION
  Report Type: Spontaneous
  Country: US (occurrence: US)
  Receive Date: 20241120
  Receipt Date: 20241219
  Transmission Date: 20250115
  Serious: No
  Sender: ROCHE
  Company Number: US-ROCHE-10000134806

PATIENT
  Age: 20 Year
  Sex: Female
  Weight: 78.01 kg

DRUGS (4)
  1. XOLAIR [Suspect]
     Active Substance: OMALIZUMAB
     Indication: Lip swelling
     Dosage: (300MG/2ML)
     Route: 058
     Dates: start: 2016
  2. XOLAIR [Suspect]
     Active Substance: OMALIZUMAB
     Indication: Peripheral swelling
  3. XOLAIR [Suspect]
     Active Substance: OMALIZUMAB
     Indication: Urticaria
  4. WELLBUTRIN [Concomitant]
     Active Substance: BUPROPION HYDROCHLORIDE
     Indication: Anxiety
     Route: 048

REACTIONS (12)
  - Product dose omission issue [Not Recovered/Not Resolved]
  - Nasal septum deviation [Recovered/Resolved]
  - Respiratory disorder [Recovered/Resolved]
  - Oropharyngeal pain [Recovered/Resolved]
  - Pharyngitis streptococcal [Recovered/Resolved]
  - Enlarged uvula [Recovered/Resolved]
  - Snoring [Not Recovered/Not Resolved]
  - Anxiety [Unknown]
  - Device issue [Unknown]
  - Syringe issue [Unknown]
  - Device issue [Unknown]
  - Device issue [Unknown]

NARRATIVE: CASE EVENT DATE: 20241114
